FAERS Safety Report 4544788-8 (Version None)
Quarter: 2004Q4

REPORT INFORMATION
  Report Type: 
  Country: None (occurrence: None)
  Receive Date: 20041230
  Receipt Date: 20041223
  Transmission Date: 20050328
  Serious: Yes (Hospitalization)
  Sender: FDA-Public Use
  Company Number: US-JNJFOC-20041206532

PATIENT
  Age: 29 Year
  Sex: Male

DRUGS (1)
  1. TYLENOL [Suspect]
     Dates: start: 20040901, end: 20040901

REACTIONS (3)
  - DIZZINESS [None]
  - HEPATIC FAILURE [None]
  - NAUSEA [None]
